FAERS Safety Report 9107572 (Version 1)
Quarter: 2013Q1

REPORT INFORMATION
  Report Type: Spontaneous
  Country: BR (occurrence: BR)
  Receive Date: 20130221
  Receipt Date: 20130221
  Transmission Date: 20140127
  Serious: Yes (Hospitalization, Other)
  Sender: FDA-Public Use
  Company Number: PHHY2013BR015195

PATIENT
  Age: 59 Year
  Sex: Male
  Weight: 63 kg

DRUGS (11)
  1. MYFORTIC [Suspect]
     Dosage: 360 MG, (3 TABLETS A DAY)
     Route: 048
  2. SANDIMMUNE NEORAL [Suspect]
     Dosage: 50 MG, UNK
     Route: 048
  3. CICLOSPORIN [Suspect]
     Dosage: 50 MG, BID
  4. OMEPRAZOLE [Suspect]
     Dosage: 20 MG, DAILY
  5. AMLODIPINE [Suspect]
     Dosage: 5 MG, ONCE A DAY
  6. ATENOLOL [Suspect]
     Dosage: UNK UKN, UNK
  7. TAMSULOSIN [Suspect]
     Dosage: 0.4 MG, UNK
  8. MEROPENEM [Suspect]
     Dosage: 1 G, BID
  9. PREDNISOLONE [Suspect]
     Dosage: 20 MG, DAILY
  10. INSULIN [Suspect]
     Dosage: 36 UI
  11. FUROSEMIDE [Suspect]
     Dosage: 40 MG, UNK

REACTIONS (10)
  - Pyelonephritis [Unknown]
  - Neoplasm prostate [Unknown]
  - Urinary tract infection [Unknown]
  - Tremor [Unknown]
  - Pyrexia [Unknown]
  - Urinary sediment present [Unknown]
  - Hypertension [Unknown]
  - Diabetes mellitus [Unknown]
  - Nephropathy [Unknown]
  - Benign prostatic hyperplasia [Unknown]
